FAERS Safety Report 10644477 (Version 2)
Quarter: 2014Q4

REPORT INFORMATION
  Report Type: Report from Study
  Country: US (occurrence: US)
  Receive Date: 20141210
  Receipt Date: 20141210
  Transmission Date: 20150529
  Serious: Yes (Hospitalization)
  Sender: FDA-Public Use
  Company Number: US-GLAXOSMITHKLINE-A0640845B

PATIENT
  Age: 57 Year
  Sex: Male
  Weight: 82.2 kg

DRUGS (2)
  1. TYKERB [Suspect]
     Active Substance: LAPATINIB DITOSYLATE
     Indication: MALIGNANT GLIOMA
     Route: 048
     Dates: start: 20070130, end: 20070216
  2. PAZOPANIB [Suspect]
     Active Substance: PAZOPANIB
     Indication: MALIGNANT GLIOMA
     Route: 048
     Dates: start: 20070130, end: 20070216

REACTIONS (4)
  - Pneumonitis [Recovered/Resolved]
  - Pneumonitis [Unknown]
  - Chest X-ray abnormal [Unknown]
  - Pyrexia [Unknown]

NARRATIVE: CASE EVENT DATE: 20070307
